FAERS Safety Report 5577960-9 (Version None)
Quarter: 2007Q4

REPORT INFORMATION
  Report Type: 
  Country: None (occurrence: None)
  Receive Date: 20071231
  Receipt Date: 20071220
  Transmission Date: 20080405
  Serious: Yes (Hospitalization)
  Sender: FDA-Public Use
  Company Number: FR-ROCHE-537997

PATIENT
  Age: 89 Year
  Sex: Male

DRUGS (14)
  1. ROCEPHIN [Suspect]
     Indication: BRONCHITIS
     Dosage: FORM: INJECTABLE SOLUTION
     Route: 042
     Dates: start: 20070625
  2. AUGMENTIN '250' [Suspect]
     Indication: BRONCHITIS
     Route: 048
     Dates: start: 20070622
  3. TAVANIC [Suspect]
     Indication: BRONCHITIS
     Dosage: FORM: INJECTABLE SOLUTION
     Route: 042
     Dates: start: 20070605
  4. ALLOPURINOL [Suspect]
     Indication: DRUG USE FOR UNKNOWN INDICATION
     Route: 048
     Dates: start: 20070530, end: 20070628
  5. INEXIUM [Concomitant]
  6. AMIODARONE HCL [Concomitant]
  7. LEXOMIL [Concomitant]
  8. RAMIPRIL [Concomitant]
  9. STILNOX [Concomitant]
  10. BURINEX [Concomitant]
  11. PLAVIX [Concomitant]
  12. LEVOTHYROX [Concomitant]
  13. TRAMADOL HCL [Concomitant]
  14. NITRODERM [Concomitant]
     Dates: start: 20070330

REACTIONS (2)
  - PURPURA [None]
  - RASH [None]
